FAERS Safety Report 5723378-5 (Version None)
Quarter: 2008Q2

REPORT INFORMATION
  Report Type: 
  Country: None (occurrence: None)
  Receive Date: 20080429
  Receipt Date: 20080429
  Transmission Date: 20081010
  Serious: No
  Sender: FDA-Public Use
  Company Number: None

PATIENT
  Sex: Female
  Weight: 53.5244 kg

DRUGS (1)
  1. BONIVA [Suspect]
     Indication: OSTEOPENIA
     Dosage: 3 MG/3ML IV  INFUSE 3MG EVERY 3 MONTHS
     Route: 042
     Dates: start: 20080102, end: 20080429

REACTIONS (1)
  - OSTEONECROSIS [None]
